FAERS Safety Report 7552100-5 (Version None)
Quarter: 2011Q2

REPORT INFORMATION
  Report Type: 
  Country: None (occurrence: None)
  Receive Date: 20110609
  Receipt Date: 20110525
  Transmission Date: 20111010
  Serious: Yes (Hospitalization, Other)
  Sender: FDA-Public Use
  Company Number: AUR-APL-2011-02242

PATIENT
  Age: 44 Year
  Sex: Female

DRUGS (6)
  1. GLICLAZIDE [Suspect]
     Dosage: ORAL
     Route: 048
     Dates: end: 20110216
  2. TAHOR FILM-COATED TABLET [Suspect]
     Dosage: 40MG-DAILY-ORAL
     Route: 048
     Dates: start: 20110101
  3. METFORMIN HYDROCHLORIDE [Suspect]
     Dosage: 40MG-DAILY-ORAL
     Route: 048
     Dates: end: 20110216
  4. NIZORAL [Suspect]
     Indication: HYPERADRENOCORTICISM
     Dosage: ORAL
     Route: 048
     Dates: start: 20090601, end: 20110216
  5. JANUVIA [Suspect]
     Dosage: 100MG-DAILY-ORAL
     Route: 048
     Dates: start: 20110101, end: 20110210
  6. EXFORGE [Suspect]
     Dosage: AMLODIPINE 5MG/VALSARTAN 160MG-DAILY-ORAL
     Route: 048
     Dates: end: 20110216

REACTIONS (3)
  - INTERSTITIAL LUNG DISEASE [None]
  - CEREBROVASCULAR ACCIDENT [None]
  - PNEUMONIA [None]
